FAERS Safety Report 18476655 (Version 3)
Quarter: 2020Q4

REPORT INFORMATION
  Report Type: Report from Study
  Country: None (occurrence: US)
  Receive Date: 20201107
  Receipt Date: 20201117
  Transmission Date: 20210114
  Serious: Yes (Other)
  Sender: FDA-Public Use
  Company Number: US-ABBVIE-20K-163-3640092-00

PATIENT
  Age: 61 Year
  Sex: Male
  Weight: 102.15 kg

DRUGS (2)
  1. VENCLEXTA [Suspect]
     Active Substance: VENETOCLAX
     Indication: CHRONIC LYMPHOCYTIC LEUKAEMIA
     Route: 048
     Dates: start: 2018, end: 201911
  2. VENCLEXTA [Suspect]
     Active Substance: VENETOCLAX
     Dosage: TAKE 3 TABLETS BY MOUTH EVERY DAY
     Route: 048
     Dates: start: 20201009

REACTIONS (1)
  - Recurrent cancer [Not Recovered/Not Resolved]

NARRATIVE: CASE EVENT DATE: 202006
